FAERS Safety Report 5404055-7 (Version None)
Quarter: 2007Q3

REPORT INFORMATION
  Report Type: 
  Country: None (occurrence: None)
  Receive Date: 20070802
  Receipt Date: 20070720
  Transmission Date: 20080115
  Serious: Yes (Hospitalization)
  Sender: FDA-Public Use
  Company Number: US-ELI_LILLY_AND_COMPANY-US200707005095

PATIENT
  Sex: Female

DRUGS (3)
  1. FORTEO [Suspect]
     Indication: OSTEOPOROSIS
     Dates: start: 20060901, end: 20070701
  2. EVISTA [Suspect]
     Indication: OSTEOPOROSIS
     Dates: start: 19970101, end: 20070501
  3. PREDNISONE [Concomitant]
     Dates: end: 20070101

REACTIONS (4)
  - BLOOD GLUCOSE INCREASED [None]
  - BRONCHITIS [None]
  - CHEST PAIN [None]
  - FRACTURE [None]
